FAERS Safety Report 9210020 (Version 1)
Quarter: 2012Q4

REPORT INFORMATION
  Report Type: 
  Country: PH (occurrence: PH)
  Receive Date: 20120903
  Receipt Date: 20120903
  Transmission Date: 20130627
  Serious: Yes (Death, Hospitalization, Other)
  Sender: FDA-Public Use
  Company Number: PHHY2011PH117158

PATIENT
  Sex: Female

DRUGS (1)
  1. GLIVEC [Suspect]
     Dosage: UNK UKN, UNK
     Dates: start: 20070313

REACTIONS (4)
  - Death [Fatal]
  - Anaemia [Unknown]
  - Leukaemia [Unknown]
  - Type 2 diabetes mellitus [Unknown]
